FAERS Safety Report 25975533 (Version 1)
Quarter: 2025Q4

REPORT INFORMATION
  Report Type: Spontaneous
  Country: US (occurrence: None)
  Receive Date: 20251029
  Receipt Date: 20251029
  Transmission Date: 20260117
  Serious: Yes (Hospitalization)
  Sender: FDA-CTU
  Company Number: None

PATIENT
  Age: 79 Year
  Sex: Female

DRUGS (11)
  1. TACROLIMUS [Suspect]
     Active Substance: TACROLIMUS
     Indication: Heart transplant
     Dosage: OTHER FREQUENCY : TAKE 3 CAPSULES BY MOUTH EVERY MORNING AND 2 CAPSULES EVERY EVENING;?
     Dates: start: 20170216
  2. AMLODIPINE [Concomitant]
     Active Substance: AMLODIPINE BESYLATE
  3. CENTRUM TAB SILVER [Concomitant]
  4. KEPPRA TAB 250MG [Concomitant]
  5. LEVETIRACETA TAB 750MG [Concomitant]
  6. LEVOTHYROXIN TAB 150MCG [Concomitant]
  7. MAGNESIUM POW GLUCONAT [Concomitant]
  8. MAGNESIUM TAB 27MG [Concomitant]
  9. PANTOPRAZOLE TAB 40MG [Concomitant]
  10. PROTONIX TAB 40MG [Concomitant]
  11. SIMVASTATIN TAB 5MG [Concomitant]

REACTIONS (1)
  - Surgery [None]

NARRATIVE: CASE EVENT DATE: 20251001
